FAERS Safety Report 5478459-0 (Version None)
Quarter: 2007Q4

REPORT INFORMATION
  Report Type: 
  Country: None (occurrence: None)
  Receive Date: 20071005
  Receipt Date: 20071002
  Transmission Date: 20080405
  Serious: Yes (Other)
  Sender: FDA-Public Use
  Company Number: US-GENENTECH-230176

PATIENT
  Sex: Male

DRUGS (2)
  1. LUCENTIS [Suspect]
     Indication: MACULAR DEGENERATION
  2. MEDICATION (UNK INGREDIENT) [Concomitant]
     Indication: PARKINSON'S DISEASE

REACTIONS (2)
  - CONDITION AGGRAVATED [None]
  - TREMOR [None]
